FAERS Safety Report 6722867-4 (Version None)
Quarter: 2010Q2

REPORT INFORMATION
  Report Type: 
  Country: None (occurrence: None)
  Receive Date: 20100512
  Receipt Date: 20100512
  Transmission Date: 20101027
  Serious: Yes (Other)
  Sender: FDA-Public Use
  Company Number: None

PATIENT
  Age: 41 Year
  Sex: Female
  Weight: 113.3993 kg

DRUGS (1)
  1. MIRENA [Suspect]
     Indication: CONTRACEPTION
     Dates: start: 20090506, end: 20100506

REACTIONS (36)
  - ABDOMINAL DISTENSION [None]
  - ANXIETY [None]
  - APATHY [None]
  - ARTHROPATHY [None]
  - ASTHENIA [None]
  - BACK PAIN [None]
  - CHEST DISCOMFORT [None]
  - DEPRESSION [None]
  - DIZZINESS [None]
  - DRUG INEFFECTIVE [None]
  - FATIGUE [None]
  - FEAR [None]
  - FEELING ABNORMAL [None]
  - GAIT DISTURBANCE [None]
  - HEADACHE [None]
  - HYPERSOMNIA [None]
  - HYPOAESTHESIA [None]
  - INJECTION SITE HAEMATOMA [None]
  - INJECTION SITE PRURITUS [None]
  - LIBIDO DECREASED [None]
  - LICE INFESTATION [None]
  - MALAISE [None]
  - METRORRHAGIA [None]
  - MUSCLE SPASMS [None]
  - NIPPLE PAIN [None]
  - OVARIAN CYST [None]
  - PAIN IN EXTREMITY [None]
  - PALPITATIONS [None]
  - PANIC REACTION [None]
  - PARANOIA [None]
  - PREMENSTRUAL SYNDROME [None]
  - PRURITUS [None]
  - RASH [None]
  - RESTLESS LEGS SYNDROME [None]
  - TREMOR [None]
  - WEIGHT INCREASED [None]
